FAERS Safety Report 10870100 (Version 1)
Quarter: 2015Q1

REPORT INFORMATION
  Report Type: Spontaneous
  Country: CA (occurrence: None)
  Receive Date: 20150219
  Receipt Date: 20150219
  Transmission Date: 20150721
  Serious: Yes (Hospitalization, Disabling, Other)
  Sender: FDA-Public Use
  Company Number: 2015-000250

PATIENT
  Age: 70 Year
  Sex: Female
  Weight: 70 kg

DRUGS (4)
  1. CALCIUM (CALCIUM) [Concomitant]
     Active Substance: CALCIUM
  2. PROLIA [Suspect]
     Active Substance: DENOSUMAB
     Dosage: 1 DF, EVERY 6 MONTHS, SUBCUTANEOUS
  3. ERGOCALCIFEROL (ERGOCALCIFEROL) [Concomitant]
     Active Substance: ERGOCALCIFEROL
  4. ACTONEL [Suspect]
     Active Substance: RISEDRONATE SODIUM
     Route: 048

REACTIONS (4)
  - Atypical fracture [None]
  - Fracture displacement [None]
  - Femur fracture [None]
  - Pathological fracture [None]
